FAERS Safety Report 8126204-2 (Version None)
Quarter: 2012Q1

REPORT INFORMATION
  Report Type: 
  Country: None (occurrence: None)
  Receive Date: 20120209
  Receipt Date: 20120206
  Transmission Date: 20120608
  Serious: Yes (Other)
  Sender: FDA-Public Use
  Company Number: PHHY2012VE010436

PATIENT
  Sex: Female

DRUGS (1)
  1. CLOZAPINE [Suspect]
     Dosage: 75 MG, UNK
     Dates: start: 20021031

REACTIONS (3)
  - NEUTROPHIL COUNT DECREASED [None]
  - MONOCYTE COUNT DECREASED [None]
  - LYMPHOCYTE COUNT INCREASED [None]
